FAERS Safety Report 11561537 (Version 2)
Quarter: 2015Q4

REPORT INFORMATION
  Report Type: Spontaneous
  Country: US (occurrence: US)
  Receive Date: 20150916
  Receipt Date: 20151027
  Transmission Date: 20160304
  Serious: No
  Sender: FDA-Public Use
  Company Number: US-ELI_LILLY_AND_COMPANY-US200810006723

PATIENT
  Sex: Female

DRUGS (3)
  1. CITRICAL [Concomitant]
     Active Substance: CALCIUM CITRATE
  2. FORTEO [Suspect]
     Active Substance: TERIPARATIDE
     Dates: start: 2008
  3. ACTONEL [Concomitant]
     Active Substance: RISEDRONATE SODIUM

REACTIONS (1)
  - Bone pain [Not Recovered/Not Resolved]

NARRATIVE: CASE EVENT DATE: 2008
